FAERS Safety Report 8492014-X (Version None)
Quarter: 2012Q3

REPORT INFORMATION
  Report Type: 
  Country: None (occurrence: None)
  Receive Date: 20120706
  Receipt Date: 20120629
  Transmission Date: 20120928
  Serious: Yes (Hospitalization, Other)
  Sender: FDA-Public Use
  Company Number: US-PFIZER INC-2012120712

PATIENT
  Sex: Female

DRUGS (7)
  1. DILANTIN [Suspect]
     Dosage: 430 MG (4X100MG AND 1X30MG), ONCE A DAY
     Route: 048
     Dates: start: 20120501
  2. DILANTIN [Suspect]
     Indication: EPILEPSY
     Dosage: 460 MG (4X100MG AND 2X30MG), ONCE A DAY
     Route: 048
     Dates: start: 20120401, end: 20120501
  3. ZOLOFT [Concomitant]
     Indication: ANXIETY
     Dosage: UNK
  4. CLONAZEPAM [Concomitant]
     Indication: ANXIETY
     Dosage: UNK
  5. DILANTIN [Suspect]
     Indication: CONVULSION
     Dosage: 360 MG (3X100MG AND 2X30MG), ONCE A DAY
     Route: 048
     Dates: start: 20110601, end: 20120401
  6. DIOVAN [Concomitant]
     Indication: HYPERTENSION
     Dosage: UNK
  7. CLONAZEPAM [Concomitant]
     Indication: SLEEP DISORDER

REACTIONS (13)
  - CONVULSION [None]
  - ANTICONVULSANT DRUG LEVEL INCREASED [None]
  - SINUSITIS [None]
  - MENINGIOMA [None]
  - LETHARGY [None]
  - FEELING ABNORMAL [None]
  - LUNG NEOPLASM MALIGNANT [None]
  - KIDNEY INFECTION [None]
  - MALAISE [None]
  - MENTAL DISORDER [None]
  - INFLUENZA [None]
  - FATIGUE [None]
  - CLUMSINESS [None]
